FAERS Safety Report 6038383-1 (Version None)
Quarter: 2009Q1

REPORT INFORMATION
  Report Type: 
  Country: None (occurrence: None)
  Receive Date: 20090115
  Receipt Date: 20081212
  Transmission Date: 20090719
  Serious: No
  Sender: FDA-Public Use
  Company Number: US-BAYER-200814868BCC

PATIENT
  Age: 75 Year
  Sex: Female
  Weight: 85 kg

DRUGS (6)
  1. ALEVE [Suspect]
     Indication: BACK PAIN
     Dosage: TOTAL DAILY DOSE: 660 MG  UNIT DOSE: 220 MG
     Dates: start: 20081211, end: 20081211
  2. ALEVE [Suspect]
     Dosage: TOTAL DAILY DOSE: 440 MG  UNIT DOSE: 220 MG
     Dates: start: 20081212
  3. CENTRUM SILVER [Concomitant]
  4. CALCIUM + D [Concomitant]
  5. ASCORBIC ACID [Concomitant]
  6. ATENOLOL [Concomitant]

REACTIONS (2)
  - BACK PAIN [None]
  - HEADACHE [None]
